FAERS Safety Report 7047679-6 (Version None)
Quarter: 2010Q4

REPORT INFORMATION
  Report Type: 
  Country: None (occurrence: None)
  Receive Date: 20101015
  Receipt Date: 20101005
  Transmission Date: 20110411
  Serious: Yes (Hospitalization, Disabling, Other)
  Sender: FDA-Public Use
  Company Number: US-MERCK-0808USA05314

PATIENT
  Age: 52 Year
  Sex: Female

DRUGS (2)
  1. FOSAMAX [Suspect]
     Indication: OSTEOPOROSIS
     Route: 048
     Dates: start: 19961021, end: 20010730
  2. FOSAMAX [Suspect]
     Route: 048
     Dates: start: 20010730, end: 20080705

REACTIONS (20)
  - ARTHRALGIA [None]
  - BONE DISORDER [None]
  - BONE PAIN [None]
  - BREAST DISORDER [None]
  - DEVICE ISSUE [None]
  - FEMUR FRACTURE [None]
  - FOOT FRACTURE [None]
  - GAIT DISTURBANCE [None]
  - JOINT INJURY [None]
  - LIGAMENT SPRAIN [None]
  - LIMB INJURY [None]
  - LOW TURNOVER OSTEOPATHY [None]
  - MENISCAL DEGENERATION [None]
  - ORAL DISORDER [None]
  - PAIN IN EXTREMITY [None]
  - PATELLOFEMORAL PAIN SYNDROME [None]
  - PERIODONTAL DISEASE [None]
  - STRESS FRACTURE [None]
  - TONSILLAR DISORDER [None]
  - VARICOSE VEIN [None]
